FAERS Safety Report 19286960 (Version 3)
Quarter: 2021Q3

REPORT INFORMATION
  Report Type: Report from Study
  Country: PT (occurrence: PT)
  Receive Date: 20210521
  Receipt Date: 20210809
  Transmission Date: 20211014
  Serious: Yes (Other)
  Sender: FDA-Public Use
  Company Number: NVSC2021PT109470

PATIENT
  Age: 15 Month
  Sex: Male

DRUGS (2)
  1. AVXS?101 [Suspect]
     Active Substance: ONASEMNOGENE ABEPARVOVEC
     Indication: SPINAL MUSCULAR ATROPHY
     Dosage: 1.1 X E14VG/KG, ONCE/SINGLE
     Route: 042
     Dates: start: 20210320
  2. PREDNISOLONE. [Concomitant]
     Active Substance: PREDNISOLONE
     Indication: PRODUCT USED FOR UNKNOWN INDICATION
     Dosage: 1 MG/KG
     Route: 065
     Dates: start: 20210419

REACTIONS (3)
  - Nystagmus [Recovered/Resolved]
  - Eye movement disorder [Recovered/Resolved]
  - Thrombocytopenia [Recovered/Resolved]

NARRATIVE: CASE EVENT DATE: 20210329
